FAERS Safety Report 21035334 (Version 1)
Quarter: 2022Q3

REPORT INFORMATION
  Report Type: Spontaneous
  Country: FI (occurrence: FI)
  Receive Date: 20220701
  Receipt Date: 20220701
  Transmission Date: 20221026
  Serious: Yes (Other)
  Sender: FDA-Public Use
  Company Number: FI-ELI_LILLY_AND_COMPANY-FI202206011343

PATIENT
  Age: 72 Year
  Sex: Female

DRUGS (1)
  1. TALTZ [Suspect]
     Active Substance: IXEKIZUMAB
     Indication: Axial spondyloarthritis
     Dosage: UNK UNK, UNKNOWN
     Route: 065

REACTIONS (1)
  - Colitis [Unknown]
